FAERS Safety Report 9291573 (Version 1)
Quarter: 2013Q2

REPORT INFORMATION
  Report Type: Spontaneous
  Country: GB (occurrence: GB)
  Receive Date: 20130515
  Receipt Date: 20130515
  Transmission Date: 20140414
  Serious: Yes (Hospitalization)
  Sender: FDA-Public Use
  Company Number: GB-009507513-1305GBR008455

PATIENT
  Age: 71 Year
  Sex: Female
  Weight: 80.28 kg

DRUGS (6)
  1. FOSAMAX [Suspect]
     Indication: OSTEOPOROSIS PROPHYLAXIS
     Dosage: 70 MG, 1/1 WEEKS
     Route: 048
     Dates: start: 2005, end: 20130429
  2. FERROUS SULFATE [Concomitant]
  3. NAPROXEN [Concomitant]
  4. OMEPRAZOLE [Concomitant]
  5. PREDNISOLONE [Concomitant]
  6. TRAMADOL HYDROCHLORIDE [Concomitant]

REACTIONS (2)
  - Atypical fracture [Recovered/Resolved with Sequelae]
  - Arthralgia [Unknown]
